FAERS Safety Report 6201278-4 (Version None)
Quarter: 2009Q2

REPORT INFORMATION
  Report Type: 
  Country: None (occurrence: None)
  Receive Date: 20090526
  Receipt Date: 20090514
  Transmission Date: 20091009
  Serious: Yes (Other)
  Sender: FDA-Public Use
  Company Number: PHHY2009JP06908

PATIENT
  Sex: Male

DRUGS (11)
  1. GLEEVEC [Suspect]
     Indication: CHRONIC MYELOID LEUKAEMIA
     Dosage: 400 MG DAILY
     Route: 048
     Dates: start: 20071026, end: 20080411
  2. GLEEVEC [Suspect]
     Dosage: 200 MG DAILY
     Route: 048
     Dates: start: 20080530, end: 20080703
  3. GLEEVEC [Suspect]
     Dosage: 300 MG DAILY
     Route: 048
     Dates: start: 20080704, end: 20081030
  4. GLEEVEC [Suspect]
     Dosage: 400 MG DAILY
     Route: 048
     Dates: start: 20081031
  5. PREDNISOLONE [Concomitant]
     Dosage: 15 MG
     Route: 048
     Dates: start: 20080516
  6. PREDNISOLONE [Concomitant]
     Dosage: 20 MG
     Route: 048
  7. PREDNISOLONE [Concomitant]
     Dosage: 15 MG
     Route: 048
  8. PREDNISOLONE [Concomitant]
     Dosage: 125 MG
     Route: 048
  9. PREDNISOLONE [Concomitant]
     Dosage: 10 MG
     Route: 048
  10. PREDNISOLONE [Concomitant]
     Dosage: 7.5 MG
     Route: 048
  11. PREDNISOLONE [Concomitant]
     Dosage: 5 MG
     Route: 048
     Dates: end: 20090326

REACTIONS (6)
  - CONTINUOUS POSITIVE AIRWAY PRESSURE [None]
  - FACE OEDEMA [None]
  - LARYNGEAL OEDEMA [None]
  - SLEEP APNOEA SYNDROME [None]
  - SNORING [None]
  - STOMATITIS [None]
